FAERS Safety Report 8877209 (Version 6)
Quarter: 2013Q4

REPORT INFORMATION
  Report Type: Report from Study
  Country: US (occurrence: US)
  Receive Date: 20121030
  Receipt Date: 20131024
  Transmission Date: 20140711
  Serious: Yes (Hospitalization)
  Sender: FDA-Public Use
  Company Number: US-ACTELION-A-NJ2012-73287

PATIENT
  Age: 79 Year
  Sex: Female

DRUGS (2)
  1. TRACLEER [Suspect]
     Indication: PULMONARY ARTERIAL HYPERTENSION
     Dosage: UNK
     Route: 048
  2. TYVASO [Concomitant]

REACTIONS (4)
  - Small intestinal haemorrhage [Unknown]
  - Transfusion [Unknown]
  - Anaemia [Unknown]
  - Cough [Unknown]
